FAERS Safety Report 13857527 (Version 1)
Quarter: 2017Q3

REPORT INFORMATION
  Report Type: Spontaneous
  Country: US (occurrence: US)
  Receive Date: 20170811
  Receipt Date: 20170811
  Transmission Date: 20171127
  Serious: Yes (Hospitalization)
  Sender: FDA-Public Use
  Company Number: PHHY2017US115187

PATIENT
  Age: 67 Year
  Sex: Female

DRUGS (1)
  1. LEFLUNOMIDE. [Suspect]
     Active Substance: LEFLUNOMIDE
     Indication: RHEUMATOID ARTHRITIS
     Dosage: 20 MG, QD
     Route: 065

REACTIONS (8)
  - Emphysema [Unknown]
  - Mycobacterium avium complex infection [Unknown]
  - Pulmonary tuberculosis [Unknown]
  - Cough [Unknown]
  - Tachycardia [Unknown]
  - Lymphadenopathy mediastinal [Unknown]
  - Night sweats [Unknown]
  - Fatigue [Unknown]
